FAERS Safety Report 24111643 (Version 1)
Quarter: 2024Q3

REPORT INFORMATION
  Report Type: Spontaneous
  Country: BR (occurrence: US)
  Receive Date: 20240718
  Receipt Date: 20240718
  Transmission Date: 20241017
  Serious: No
  Sender: DAIICHI
  Company Number: BR-DAIICHI SANKYO, INC.-DSU-2024-135919AA

PATIENT
  Age: 46 Year

DRUGS (1)
  1. TRASTUZUMAB DERUXTECAN [Suspect]
     Active Substance: TRASTUZUMAB DERUXTECAN
     Indication: HER2 positive colorectal cancer
     Dosage: UNK
     Route: 065

REACTIONS (3)
  - Alopecia [Unknown]
  - Fatigue [Unknown]
  - Anaemia [Unknown]
